FAERS Safety Report 20700704 (Version 2)
Quarter: 2025Q1

REPORT INFORMATION
  Report Type: Spontaneous
  Country: ES (occurrence: ES)
  Receive Date: 20220412
  Receipt Date: 20250224
  Transmission Date: 20250409
  Serious: Yes (Life-Threatening, Hospitalization, Other)
  Sender: SANOFI AVENTIS
  Company Number: None

PATIENT
  Age: 21 Year
  Sex: Male
  Weight: 63 kg

DRUGS (7)
  1. ACETAMINOPHEN [Suspect]
     Active Substance: ACETAMINOPHEN
     Indication: Overdose
     Route: 048
     Dates: start: 20220325, end: 20220325
  2. PREDNISONE [Suspect]
     Active Substance: PREDNISONE
     Indication: Suicide attempt
     Route: 048
     Dates: start: 20220325, end: 20220325
  3. DESLORATADINE [Suspect]
     Active Substance: DESLORATADINE
     Indication: Suicide attempt
     Route: 048
     Dates: start: 20220325, end: 20220325
  4. IBUPROFEN [Suspect]
     Active Substance: IBUPROFEN
     Indication: Accidental overdose
     Route: 048
     Dates: start: 20220325, end: 20220325
  5. OMEPRAZOLE [Suspect]
     Active Substance: OMEPRAZOLE
     Indication: Suicide attempt
     Route: 048
     Dates: start: 20220325, end: 20220325
  6. DOXYLAMINE SUCCINATE [Suspect]
     Active Substance: DOXYLAMINE SUCCINATE
     Indication: Suicide attempt
     Route: 048
     Dates: start: 20220325, end: 20220325
  7. DIAZEPAM [Suspect]
     Active Substance: DIAZEPAM
     Indication: Suicide attempt
     Route: 048
     Dates: start: 20220325, end: 20220325

REACTIONS (3)
  - Suicide attempt [Recovering/Resolving]
  - Depressed level of consciousness [Recovered/Resolved]
  - Intentional overdose [Recovering/Resolving]

NARRATIVE: CASE EVENT DATE: 20220325
